FAERS Safety Report 4486374-4 (Version None)
Quarter: 2004Q4

REPORT INFORMATION
  Report Type: 
  Country: None (occurrence: None)
  Receive Date: 20041022
  Receipt Date: 20041007
  Transmission Date: 20050328
  Serious: Yes (Life-Threatening, Hospitalization, Other)
  Sender: FDA-Public Use
  Company Number: 200414814BCC

PATIENT
  Age: 58 Year
  Sex: Male
  Weight: 99.7913 kg

DRUGS (3)
  1. ALEVE [Suspect]
     Indication: HEADACHE
     Dosage: 440 MG, ONCE, ORAL
     Route: 048
     Dates: start: 20031222
  2. ANTIHYPERTENSIVE [Concomitant]
  3. ANTI-DIABETICS [Concomitant]

REACTIONS (6)
  - ABDOMINAL PAIN UPPER [None]
  - DRUG HYPERSENSITIVITY [None]
  - GASTRIC ULCER PERFORATION [None]
  - HAEMATOCHEZIA [None]
  - HAEMORRHAGE [None]
  - LOSS OF CONSCIOUSNESS [None]
